FAERS Safety Report 13139058 (Version 1)
Quarter: 2017Q1

REPORT INFORMATION
  Report Type: Spontaneous
  Country: GB (occurrence: GB)
  Receive Date: 20170123
  Receipt Date: 20170123
  Transmission Date: 20170428
  Serious: Yes (Other)
  Sender: FDA-Public Use
  Company Number: GB-TEVA-729465ACC

PATIENT
  Age: 43 Year
  Sex: Male
  Weight: 82 kg

DRUGS (3)
  1. DEPAKOTE [Concomitant]
     Active Substance: DIVALPROEX SODIUM
  2. PROCYCLIDINE [Concomitant]
     Active Substance: PROCYCLIDINE
  3. TEVA UK OLANZAPINE [Suspect]
     Active Substance: OLANZAPINE
     Indication: SCHIZOAFFECTIVE DISORDER BIPOLAR TYPE
     Dosage: 5 MILLIGRAM DAILY;
     Route: 048
     Dates: start: 20160601

REACTIONS (2)
  - Sleep disorder [Not Recovered/Not Resolved]
  - Erectile dysfunction [Not Recovered/Not Resolved]

NARRATIVE: CASE EVENT DATE: 20160601
